FAERS Safety Report 5355392-6 (Version None)
Quarter: 2007Q2

REPORT INFORMATION
  Report Type: 
  Country: None (occurrence: None)
  Receive Date: 20070530
  Receipt Date: 20061214
  Transmission Date: 20071010
  Serious: Yes (Hospitalization, Other)
  Sender: FDA-Public Use
  Company Number: US200609003581

PATIENT
  Age: 40 Year
  Sex: Female
  Weight: 73.9 kg

DRUGS (1)
  1. ZYPREXA [Suspect]
     Dosage: 5 MG
     Dates: start: 20000101

REACTIONS (5)
  - BLOOD CHOLESTEROL INCREASED [None]
  - CONVULSION [None]
  - DIABETES MELLITUS [None]
  - NERVOUSNESS [None]
  - PANIC ATTACK [None]
